FAERS Safety Report 9836574 (Version 1)
Quarter: 2013Q4

REPORT INFORMATION
  Report Type: Spontaneous
  Country: US (occurrence: None)
  Receive Date: 20131121
  Receipt Date: 20131121
  Transmission Date: 20140711
  Serious: No
  Sender: FDA-Public Use
  Company Number: 1000049046

PATIENT
  Age: 83 Year
  Sex: Male

DRUGS (1)
  1. TUDORZA PRESSAIR [Suspect]
     Dosage: RESPIRATORY (INHALATION)
     Route: 055
     Dates: start: 201309

REACTIONS (2)
  - Accidental overdose [None]
  - Medication error [None]
